FAERS Safety Report 20845395 (Version 1)
Quarter: 2022Q2

REPORT INFORMATION
  Report Type: Spontaneous
  Country: US (occurrence: None)
  Receive Date: 20220518
  Receipt Date: 20220518
  Transmission Date: 20220720
  Serious: Yes (Hospitalization)
  Sender: FDA-Public Use
  Company Number: None

PATIENT
  Age: 72 Year
  Sex: Male
  Weight: 113 kg

DRUGS (2)
  1. ERTAPENEM [Suspect]
     Active Substance: ERTAPENEM
     Indication: Urinary tract infection
     Dosage: 1000 MG EVERY DAY IV?
     Route: 042
     Dates: start: 20220302, end: 20220313
  2. ERTAPENEM [Suspect]
     Active Substance: ERTAPENEM
     Indication: Urosepsis

REACTIONS (7)
  - Confusional state [None]
  - Dizziness [None]
  - Hallucination [None]
  - Orthostatic hypotension [None]
  - Fall [None]
  - Asthenia [None]
  - Dizziness [None]

NARRATIVE: CASE EVENT DATE: 20220314
